FAERS Safety Report 4700118-X (Version None)
Quarter: 2005Q2

REPORT INFORMATION
  Report Type: 
  Country: None (occurrence: None)
  Receive Date: 20050627
  Receipt Date: 20041126
  Transmission Date: 20051028
  Serious: Yes (Hospitalization, Other)
  Sender: FDA-Public Use
  Company Number: JP-NOVOPROD-240785

PATIENT
  Age: 77 Year
  Sex: Male

DRUGS (5)
  1. NOVORAPID 30 MIX CHU FLEXPEN [Suspect]
     Indication: DIABETES MELLITUS
     Dosage: 8 IU, QD
     Route: 058
     Dates: start: 20040415, end: 20041123
  2. NOVOLOG [Suspect]
     Indication: DIABETES MELLITUS
     Dosage: 5 - 14 IU QD
     Route: 058
     Dates: start: 20040324, end: 20041123
  3. FLUTRIA [Concomitant]
     Indication: ILL-DEFINED DISORDER
     Route: 048
  4. RENIVACE [Concomitant]
     Indication: ILL-DEFINED DISORDER
     Route: 048
  5. KINEDAK [Concomitant]
     Indication: ILL-DEFINED DISORDER
     Route: 048

REACTIONS (4)
  - ALANINE AMINOTRANSFERASE INCREASED [None]
  - ASPARTATE AMINOTRANSFERASE INCREASED [None]
  - GAMMA-GLUTAMYLTRANSFERASE INCREASED [None]
  - HEPATIC FUNCTION ABNORMAL [None]
